FAERS Safety Report 16207891 (Version 1)
Quarter: 2019Q2

REPORT INFORMATION
  Report Type: Spontaneous
  Country: US (occurrence: US)
  Receive Date: 20190417
  Receipt Date: 20190417
  Transmission Date: 20190711
  Serious: Yes (Other)
  Sender: FDA-Public Use
  Company Number: US-PFIZER INC-2018346057

PATIENT
  Age: 50 Year
  Sex: Male
  Weight: 113.38 kg

DRUGS (16)
  1. DILANTIN [PHENYTOIN SODIUM] [Concomitant]
     Indication: NEURALGIA
  2. LYRICA [Suspect]
     Active Substance: PREGABALIN
     Indication: NEUROPATHY PERIPHERAL
     Dosage: 200 MG, 2X/DAY
     Route: 048
  3. LYRICA [Suspect]
     Active Substance: PREGABALIN
     Indication: NEURALGIA
  4. LYRICA [Suspect]
     Active Substance: PREGABALIN
     Indication: STIFF PERSON SYNDROME
  5. PREDNISONE. [Concomitant]
     Active Substance: PREDNISONE
     Indication: GUILLAIN-BARRE SYNDROME
     Dosage: 10 MG, 1X/DAY
     Route: 048
  6. PREDNISONE. [Concomitant]
     Active Substance: PREDNISONE
     Indication: NEUROPATHY PERIPHERAL
  7. TOPAMAX [Concomitant]
     Active Substance: TOPIRAMATE
     Indication: NEURALGIA
  8. PREDNISONE. [Concomitant]
     Active Substance: PREDNISONE
     Indication: STIFF PERSON SYNDROME
  9. DILANTIN [PHENYTOIN SODIUM] [Concomitant]
     Indication: STIFF PERSON SYNDROME
  10. TOPAMAX [Concomitant]
     Active Substance: TOPIRAMATE
     Indication: NEUROPATHY PERIPHERAL
  11. LYRICA [Suspect]
     Active Substance: PREGABALIN
     Indication: GUILLAIN-BARRE SYNDROME
  12. DILANTIN [PHENYTOIN SODIUM] [Concomitant]
     Indication: GUILLAIN-BARRE SYNDROME
     Dosage: 100 MG, 3X/DAY
     Route: 048
  13. TOPAMAX [Concomitant]
     Active Substance: TOPIRAMATE
     Indication: STIFF PERSON SYNDROME
  14. PREDNISONE. [Concomitant]
     Active Substance: PREDNISONE
     Indication: NEURALGIA
  15. DILANTIN [PHENYTOIN SODIUM] [Concomitant]
     Indication: NEUROPATHY PERIPHERAL
     Dosage: 100 MG, 1X/DAY
  16. TOPAMAX [Concomitant]
     Active Substance: TOPIRAMATE
     Indication: GUILLAIN-BARRE SYNDROME
     Dosage: 200 MG, 2X/DAY
     Route: 048

REACTIONS (1)
  - Drug dependence [Unknown]
